FAERS Safety Report 8533588-X (Version None)
Quarter: 2012Q3

REPORT INFORMATION
  Report Type: 
  Country: None (occurrence: None)
  Receive Date: 20120712
  Receipt Date: 20120629
  Transmission Date: 20120928
  Serious: Yes (Other)
  Sender: FDA-Public Use
  Company Number: IMP_05928_2012

PATIENT
  Age: 73 Year
  Sex: Female

DRUGS (2)
  1. OMEPRAZOLE [Suspect]
     Indication: PROPHYLAXIS
     Dosage: (DF) (DF)
  2. NAPROXEN [Concomitant]

REACTIONS (2)
  - CUTANEOUS LUPUS ERYTHEMATOSUS [None]
  - CONDITION AGGRAVATED [None]
